FAERS Safety Report 17815470 (Version 3)
Quarter: 2022Q2

REPORT INFORMATION
  Report Type: Report from Study
  Country: US (occurrence: US)
  Receive Date: 20200522
  Receipt Date: 20220506
  Transmission Date: 20220721
  Serious: Yes (Other)
  Sender: FDA-Public Use
  Company Number: US-NOVARTISTESTPH-NVSC2020US140983

PATIENT
  Sex: Female

DRUGS (1)
  1. MAYZENT [Suspect]
     Active Substance: SIPONIMOD
     Indication: Product used for unknown indication
     Route: 065

REACTIONS (6)
  - Multiple sclerosis [Unknown]
  - Accident [Unknown]
  - Post-traumatic neck syndrome [Unknown]
  - Confusional state [Unknown]
  - Amnesia [Unknown]
  - Headache [Unknown]
